FAERS Safety Report 11240561 (Version 2)
Quarter: 2015Q3

REPORT INFORMATION
  Report Type: Spontaneous
  Country: JP (occurrence: JP)
  Receive Date: 20150706
  Receipt Date: 20150724
  Transmission Date: 20151125
  Serious: Yes (Hospitalization)
  Sender: FDA-Public Use
  Company Number: JP-009507513-1506JPN007815

PATIENT
  Age: 55 Year
  Sex: Male

DRUGS (11)
  1. FAMOTIDINE. [Concomitant]
     Active Substance: FAMOTIDINE
     Dosage: 20 MG, AFTER THE SUPPER
     Route: 048
  2. DAI-KENCHU-TO [Concomitant]
     Active Substance: MALTOSE
     Dosage: 5 MG, TID AFTER THE MEAL
     Route: 048
  3. JANUVIA [Suspect]
     Active Substance: SITAGLIPTIN PHOSPHATE
     Indication: GLYCOSYLATED HAEMOGLOBIN INCREASED
     Dosage: 50 MG, QD
     Route: 048
     Dates: start: 20141020, end: 201505
  4. VFEND [Concomitant]
     Active Substance: VORICONAZOLE
     Dosage: 50 MG, BID
     Route: 048
  5. LENDORMIN D [Concomitant]
     Active Substance: BROTIZOLAM
     Dosage: 0.5 MG, QPM BEFORE SLEEP
     Route: 048
  6. MUCOSOLVAN [Concomitant]
     Active Substance: AMBROXOL\CLENBUTEROL
     Dosage: 15 MG, TID AFTER THE MEAL
     Route: 048
  7. ADONA [Concomitant]
     Active Substance: CARBAZOCHROME SODIUM SULFONATE
     Dosage: 30 MG, TID AFTER THE MEAL
     Route: 048
  8. JANUVIA [Suspect]
     Active Substance: SITAGLIPTIN PHOSPHATE
     Indication: GLYCOSYLATED HAEMOGLOBIN INCREASED
     Dosage: 25 MG, UNK
     Route: 048
     Dates: start: 20140811, end: 2014
  9. URSO [Concomitant]
     Active Substance: URSODIOL
     Dosage: 100 MG, TID AFTER THE MEAL
     Route: 048
  10. TRANSAMIN [Concomitant]
     Active Substance: TRANEXAMIC ACID
     Dosage: 250 MG, TID AFTER THE MEAL
     Route: 048
  11. MIYA-BM [Concomitant]
     Active Substance: CLOSTRIDIUM BUTYRICUM SPORES STRAIN M-55
     Dosage: 1 DF, TID AFTER THE MEAL
     Route: 048

REACTIONS (1)
  - Ileus [Recovered/Resolved]

NARRATIVE: CASE EVENT DATE: 20150526
